FAERS Safety Report 10006799 (Version 1)
Quarter: 2014Q1

REPORT INFORMATION
  Report Type: Spontaneous
  Country: US (occurrence: None)
  Receive Date: 20140311
  Receipt Date: 20140311
  Transmission Date: 20141002
  Serious: Yes (Other)
  Sender: FDA-Public Use
  Company Number: 20140101

PATIENT
  Age: 42 Year
  Sex: Female

DRUGS (3)
  1. LEVETIRACETAM [Suspect]
     Indication: PRODUCT USED FOR UNKNOWN INDICATION
  2. LAMOTRIGINE [Suspect]
     Indication: PRODUCT USED FOR UNKNOWN INDICATION
  3. GABAPENTIN [Concomitant]

REACTIONS (4)
  - Drug reaction with eosinophilia and systemic symptoms [None]
  - Pyrexia [None]
  - Rash pruritic [None]
  - Hepatitis [None]
